FAERS Safety Report 6676797-7 (Version None)
Quarter: 2010Q2

REPORT INFORMATION
  Report Type: 
  Country: None (occurrence: None)
  Receive Date: 20100412
  Receipt Date: 20100405
  Transmission Date: 20101027
  Serious: Yes (Death, Other)
  Sender: FDA-Public Use
  Company Number: FR-ROCHE-695839

PATIENT
  Age: 40 Year
  Sex: Male

DRUGS (5)
  1. MYCOPHENOLATE MOFETIL [Suspect]
     Indication: PROPHYLAXIS AGAINST GRAFT VERSUS HOST DISEASE
     Route: 065
  2. COTRIM [Suspect]
     Route: 065
  3. ATOVAQUONE [Concomitant]
  4. CYCLOPHOSPHAMIDE [Concomitant]
     Indication: PROPHYLAXIS AGAINST GRAFT VERSUS HOST DISEASE
  5. METHYLPREDNISOLONE [Concomitant]
     Indication: IMMUNOSUPPRESSION

REACTIONS (5)
  - ACUTE GRAFT VERSUS HOST DISEASE IN SKIN [None]
  - ACUTE RESPIRATORY FAILURE [None]
  - HAEMOLYTIC URAEMIC SYNDROME [None]
  - NEPHROPATHY TOXIC [None]
  - PNEUMONIA TOXOPLASMAL [None]
